FAERS Safety Report 9971883 (Version 1)
Quarter: 2014Q1

REPORT INFORMATION
  Report Type: Report from Study
  Country: US (occurrence: US)
  Receive Date: 20140306
  Receipt Date: 20140306
  Transmission Date: 20141002
  Serious: No
  Sender: FDA-Public Use
  Company Number: US-ABBVIE-13P-163-1152940-00

PATIENT
  Age: 20 Year
  Sex: Male

DRUGS (4)
  1. HUMIRA [Suspect]
     Indication: PSORIASIS
     Dates: start: 20130903, end: 20130903
  2. HUMIRA [Suspect]
     Dates: start: 20130910, end: 20130910
  3. HUMIRA [Suspect]
     Dates: start: 20130927, end: 20130927
  4. HUMIRA [Suspect]

REACTIONS (5)
  - Dysarthria [Recovered/Resolved]
  - Memory impairment [Recovering/Resolving]
  - Back pain [Recovering/Resolving]
  - Chest pain [Recovering/Resolving]
  - Drug dose omission [Recovering/Resolving]
